FAERS Safety Report 20263890 (Version 1)
Quarter: 2021Q4

REPORT INFORMATION
  Report Type: Spontaneous
  Country: US (occurrence: None)
  Receive Date: 20211230
  Receipt Date: 20211230
  Transmission Date: 20220303
  Serious: Yes (Disabling)
  Sender: FDA-Public Use
  Company Number: None

PATIENT
  Sex: Female
  Weight: 126 kg

DRUGS (1)
  1. FLUOXETINE [Suspect]
     Active Substance: FLUOXETINE HYDROCHLORIDE
     Indication: Depression

REACTIONS (9)
  - Migraine [None]
  - Abdominal pain [None]
  - Neuropathy peripheral [None]
  - Osteoarthritis [None]
  - Anxiety [None]
  - Paranoia [None]
  - Hallucination [None]
  - Pain [None]
  - Nausea [None]
